FAERS Safety Report 10182480 (Version 1)
Quarter: 2014Q2

REPORT INFORMATION
  Report Type: Spontaneous
  Country: FR (occurrence: FR)
  Receive Date: 20140520
  Receipt Date: 20140520
  Transmission Date: 20141212
  Serious: No
  Sender: FDA-Public Use
  Company Number: FR-JNJFOC-20140505276

PATIENT
  Age: 84 Year
  Sex: Female

DRUGS (1)
  1. DUROGESIC [Suspect]
     Indication: BACK PAIN
     Route: 062

REACTIONS (3)
  - Product quality issue [Unknown]
  - Poor quality drug administered [Unknown]
  - Inappropriate schedule of drug administration [Unknown]
